FAERS Safety Report 13184542 (Version 5)
Quarter: 2017Q2

REPORT INFORMATION
  Report Type: Report from Study
  Country: US (occurrence: US)
  Receive Date: 20170203
  Receipt Date: 20170523
  Transmission Date: 20170830
  Serious: Yes (Other)
  Sender: FDA-Public Use
  Company Number: US-BAYER-2017-017442

PATIENT
  Age: 85 Year
  Sex: Male

DRUGS (7)
  1. MULTIVITAMIN [Concomitant]
     Active Substance: VITAMINS
  2. SAW PALMETTO [Concomitant]
     Active Substance: HERBALS\SAW PALMETTO
  3. SENNOSIDE [Concomitant]
     Active Substance: SENNOSIDES
  4. TAMSULOSIN HYDROCHLORIDE. [Concomitant]
     Active Substance: TAMSULOSIN HYDROCHLORIDE
  5. NEXAVAR [Suspect]
     Active Substance: SORAFENIB
     Indication: HEPATIC CANCER
     Dosage: 400 MG, BID
     Route: 048
     Dates: start: 20170119, end: 2017
  6. PRAVASTATIN SODIUM. [Concomitant]
     Active Substance: PRAVASTATIN SODIUM
  7. DOCUSATE SODIUM. [Concomitant]
     Active Substance: DOCUSATE SODIUM

REACTIONS (11)
  - Peripheral coldness [None]
  - Pallor [None]
  - Blood count abnormal [None]
  - Oral mucosal erythema [None]
  - Oropharyngeal pain [None]
  - Cold sweat [None]
  - Ageusia [None]
  - Asthenia [None]
  - Fatigue [None]
  - Abdominal cavity drainage [None]
  - Intra-abdominal haemorrhage [None]

NARRATIVE: CASE EVENT DATE: 2017
